FAERS Safety Report 4987846-6 (Version None)
Quarter: 2006Q1

REPORT INFORMATION
  Report Type: 
  Country: None (occurrence: None)
  Receive Date: 20060309
  Receipt Date: 20050801
  Transmission Date: 20060701
  Serious: Yes (Other)
  Sender: FDA-Public Use
  Company Number: 388243

PATIENT
  Sex: 0

DRUGS (1)
  1. ISOTRETINOIN [Suspect]
     Dosage: 20 MG DAILY  ORAL
     Route: 048
     Dates: end: 20040927

REACTIONS (1)
  - NORMAL NEWBORN [None]
